FAERS Safety Report 16809549 (Version 1)
Quarter: 2019Q3

REPORT INFORMATION
  Report Type: Spontaneous
  Country: US (occurrence: US)
  Receive Date: 20190916
  Receipt Date: 20190916
  Transmission Date: 20191005
  Serious: Yes (Hospitalization, Other)
  Sender: FDA-Public Use
  Company Number: US-STRIDES ARCOLAB LIMITED-2019SP008602

PATIENT
  Age: 67 Year
  Sex: Male

DRUGS (11)
  1. PROPOFOL. [Interacting]
     Active Substance: PROPOFOL
     Indication: ATRIAL APPENDAGE CLOSURE
     Dosage: UNK, (TO A MINIMUM ALVEOLAR CONCENTRATION OF 1)
     Route: 065
  2. SEVOFLURANE. [Interacting]
     Active Substance: SEVOFLURANE
     Indication: GENERAL ANAESTHESIA
     Dosage: UNK, (TO A MINIMUM ALVEOLAR CONCENTRATION OF 0.5)
     Route: 065
  3. SEVOFLURANE. [Interacting]
     Active Substance: SEVOFLURANE
     Indication: ATRIAL APPENDAGE CLOSURE
     Dosage: UNK, (TO A MINIMUM ALVEOLAR CONCENTRATION OF 1)
     Route: 065
  4. ISOPHANE INSULIN [Suspect]
     Active Substance: INSULIN NOS
     Indication: PRODUCT USED FOR UNKNOWN INDICATION
     Dosage: UNK
     Route: 065
  5. PROTAMINE /00187402/ [Suspect]
     Active Substance: PROTAMINE SULFATE
     Indication: PROCOAGULANT THERAPY
     Dosage: UNK
     Route: 065
  6. LOSARTAN. [Suspect]
     Active Substance: LOSARTAN
     Indication: HYPERTENSION
     Dosage: 25 MG DAILY
     Route: 065
  7. PROPOFOL. [Interacting]
     Active Substance: PROPOFOL
     Indication: GENERAL ANAESTHESIA
     Dosage: UNK, (TO A MINIMUM ALVEOLAR CONCENTRATION OF 0.5)
     Route: 065
  8. CISATRACURIUM /01302502/ [Interacting]
     Active Substance: CISATRACURIUM
     Indication: ATRIAL APPENDAGE CLOSURE
     Dosage: UNK,  (TO A MINIMUM ALVEOLAR CONCENTRATION OF 1)
     Route: 065
  9. CISATRACURIUM                      /01302502/ [Interacting]
     Active Substance: CISATRACURIUM
     Indication: GENERAL ANAESTHESIA
     Dosage: UNK,  (TO A MINIMUM ALVEOLAR CONCENTRATION OF 0.5)
     Route: 065
  10. METOPROLOL SUCCINATE. [Concomitant]
     Active Substance: METOPROLOL SUCCINATE
     Indication: HYPERTENSION
     Dosage: 50 MG, DAILY
     Route: 065
  11. WARFARIN [Concomitant]
     Active Substance: WARFARIN
     Indication: PRODUCT USED FOR UNKNOWN INDICATION
     Dosage: UNK
     Route: 065

REACTIONS (3)
  - Vasoplegia syndrome [Recovered/Resolved]
  - Drug interaction [Unknown]
  - Hypotension [Recovered/Resolved]
